FAERS Safety Report 6437824-5 (Version None)
Quarter: 2009Q4

REPORT INFORMATION
  Report Type: 
  Country: None (occurrence: None)
  Receive Date: 20091112
  Receipt Date: 20091028
  Transmission Date: 20100525
  Serious: Yes (Other)
  Sender: FDA-Public Use
  Company Number: DE-GENENTECH-293870

PATIENT
  Sex: Male

DRUGS (1)
  1. BEVACIZUMAB [Suspect]
     Indication: RECTAL CANCER
     Dosage: 840 MG, UNK
     Route: 042
     Dates: start: 20090501, end: 20090601

REACTIONS (1)
  - BLADDER PERFORATION [None]
